FAERS Safety Report 8592832-3 (Version None)
Quarter: 2012Q3

REPORT INFORMATION
  Report Type: 
  Country: None (occurrence: None)
  Receive Date: 20120814
  Receipt Date: 20120803
  Transmission Date: 20120928
  Serious: Yes (Hospitalization)
  Sender: FDA-Public Use
  Company Number: US-ELI_LILLY_AND_COMPANY-US201204005921

PATIENT
  Sex: Female

DRUGS (10)
  1. CITRACAL [Concomitant]
     Dosage: UNK
  2. FORTEO [Suspect]
     Dosage: 20 UG, QD
  3. ATIVAN [Concomitant]
     Dosage: UNK
  4. ZYRTEC [Concomitant]
     Dosage: UNK
  5. ACIDOPHILUS [Concomitant]
     Dosage: UNK
  6. FORTEO [Suspect]
     Indication: OSTEOPOROSIS
     Dosage: 20 UG, QD
     Dates: start: 20120201
  7. AROMASIN [Concomitant]
     Dosage: UNK
  8. TOPAMAX [Concomitant]
     Dosage: UNK
  9. EFFEXOR [Concomitant]
  10. VITAMIN D [Concomitant]
     Dosage: UNK

REACTIONS (8)
  - BACK PAIN [None]
  - ABSCESS [None]
  - INSOMNIA [None]
  - CLOSTRIDIAL INFECTION [None]
  - DECREASED APPETITE [None]
  - MUSCULOSKELETAL DISCOMFORT [None]
  - APPENDICITIS PERFORATED [None]
  - BACK DISORDER [None]
